FAERS Safety Report 20715448 (Version 1)
Quarter: 2022Q2

REPORT INFORMATION
  Report Type: Spontaneous
  Country: US (occurrence: US)
  Receive Date: 20220415
  Receipt Date: 20220415
  Transmission Date: 20220721
  Serious: Yes (Other)
  Sender: FDA-Public Use
  Company Number: US-BRISTOL-MYERS SQUIBB COMPANY-2022-020605

PATIENT
  Age: 62 Year
  Sex: Male
  Weight: 62.59 kg

DRUGS (1)
  1. POMALYST [Suspect]
     Active Substance: POMALIDOMIDE
     Indication: Plasma cell myeloma
     Dosage: FREQ : DAILY DAYS 1 TO 21 THEN OFF FOR 7 DAYS
     Route: 048
     Dates: start: 20220315

REACTIONS (1)
  - Acute kidney injury [Unknown]
